FAERS Safety Report 5787385-9 (Version None)
Quarter: 2008Q2

REPORT INFORMATION
  Report Type: 
  Country: None (occurrence: None)
  Receive Date: 20080625
  Receipt Date: 20080625
  Transmission Date: 20081010
  Serious: Yes (Hospitalization)
  Sender: FDA-Public Use
  Company Number: None

PATIENT
  Age: 64 Year
  Sex: Male
  Weight: 156.94 kg

DRUGS (1)
  1. HEPARIN SODIUM [Suspect]
     Indication: EVIDENCE BASED TREATMENT
     Dosage: 25000 UNITS OTHER IV
     Route: 042
     Dates: start: 20080527, end: 20080602

REACTIONS (2)
  - EPISTAXIS [None]
  - INFUSION SITE REACTION [None]
